FAERS Safety Report 8565023-X (Version None)
Quarter: 2012Q3

REPORT INFORMATION
  Report Type: 
  Country: None (occurrence: None)
  Receive Date: 20120723
  Receipt Date: 20120706
  Transmission Date: 20120928
  Serious: Yes (Other)
  Sender: FDA-Public Use
  Company Number: GGEL20120700868

PATIENT
  Age: 10 Year
  Sex: Female

DRUGS (1)
  1. LAMOTRIGINE [Suspect]
     Indication: GRAND MAL CONVULSION
     Dosage: 22 MG/KG, DAILY

REACTIONS (9)
  - OCULOGYRIC CRISIS [None]
  - TREMOR [None]
  - CEREBRAL ATROPHY [None]
  - CEREBELLAR ATROPHY [None]
  - CONVULSION [None]
  - CONDITION AGGRAVATED [None]
  - IRRITABILITY [None]
  - TOXICITY TO VARIOUS AGENTS [None]
  - NO THERAPEUTIC RESPONSE [None]
